FAERS Safety Report 21029341 (Version 6)
Quarter: 2022Q4

REPORT INFORMATION
  Report Type: Report from Study
  Country: US (occurrence: US)
  Receive Date: 20220630
  Receipt Date: 20221114
  Transmission Date: 20230112
  Serious: No
  Sender: FDA-Public Use
  Company Number: US-NOVARTISTESTPH-NVSC2022US149598

PATIENT
  Sex: Female

DRUGS (4)
  1. PIQRAY [Suspect]
     Active Substance: ALPELISIB
     Indication: Breast cancer female
     Dosage: UNK
     Route: 048
  2. PIQRAY [Suspect]
     Active Substance: ALPELISIB
     Indication: Bone cancer
     Dosage: UNK (ALTERNATING DAYS WITH 200 MG AND 300 MG)
     Route: 048
  3. PIQRAY [Suspect]
     Active Substance: ALPELISIB
     Dosage: 300 MG, QD
     Route: 048
  4. PIQRAY [Suspect]
     Active Substance: ALPELISIB
     Dosage: 200 MG QOD, (ALT WITH 300MG QOD)
     Route: 065

REACTIONS (6)
  - Oral pain [Unknown]
  - Skin exfoliation [Unknown]
  - Rash [Unknown]
  - Gingival pain [Unknown]
  - Nausea [Unknown]
  - Blood glucose increased [Unknown]
